FAERS Safety Report 19075400 (Version 1)
Quarter: 2021Q1

REPORT INFORMATION
  Report Type: Spontaneous
  Country: US (occurrence: US)
  Receive Date: 20210331
  Receipt Date: 20210331
  Transmission Date: 20210420
  Serious: Yes (Hospitalization)
  Sender: FDA-Public Use
  Company Number: US-STRIDES ARCOLAB LIMITED-2020SP012521

PATIENT
  Age: 26 Year
  Sex: Female

DRUGS (3)
  1. IBUPROFEN. [Suspect]
     Active Substance: IBUPROFEN
     Indication: PAIN IN JAW
     Dosage: UNK
     Route: 065
  2. ECSTASY [Suspect]
     Active Substance: MIDOMAFETAMINE
     Indication: DISEASE PROGRESSION
  3. ECSTASY [Suspect]
     Active Substance: MIDOMAFETAMINE
     Indication: MOOD SWINGS
     Dosage: PILLS
     Route: 065

REACTIONS (13)
  - Salivary hypersecretion [Not Recovered/Not Resolved]
  - Toxic epidermal necrolysis [Unknown]
  - Eye irritation [Unknown]
  - Rash [Unknown]
  - Macule [Unknown]
  - Nausea [Unknown]
  - Oropharyngeal pain [Unknown]
  - Dry mouth [Unknown]
  - Stevens-Johnson syndrome [Unknown]
  - Blister [Unknown]
  - Dermatitis bullous [Unknown]
  - Skin exfoliation [Unknown]
  - Pyrexia [Unknown]
